FAERS Safety Report 10565022 (Version 1)
Quarter: 2014Q4

REPORT INFORMATION
  Report Type: Spontaneous
  Country: JP (occurrence: None)
  Receive Date: 20141103
  Receipt Date: 20141103
  Transmission Date: 20150529
  Serious: Yes (Hospitalization)
  Sender: FDA-Public Use
  Company Number: IMP_07993_2014

PATIENT
  Age: 6 Year
  Sex: Male

DRUGS (4)
  1. VITAMIN B6 [Suspect]
     Active Substance: PYRIDOXINE HYDROCHLORIDE
     Indication: MUSCLE SPASMS
     Dosage: DF
  2. DIVALPROEX SODIUM. [Suspect]
     Active Substance: DIVALPROEX SODIUM
     Indication: MUSCLE SPASMS
     Dosage: DF
  3. PHENYTOIN (PHENYTOIN) [Suspect]
     Active Substance: PHENYTOIN
     Indication: PRODUCT USED FOR UNKNOWN INDICATION
     Dosage: DF
  4. CLOBAZAM (CLOBAZAM) [Suspect]
     Active Substance: CLOBAZAM
     Indication: PRODUCT USED FOR UNKNOWN INDICATION
     Dosage: DF

REACTIONS (6)
  - Metabolic acidosis [None]
  - Quadriplegia [None]
  - Epilepsy [None]
  - Fanconi syndrome [None]
  - Cerebral palsy [None]
  - Mental retardation [None]
